FAERS Safety Report 8033675-9 (Version None)
Quarter: 2012Q1

REPORT INFORMATION
  Report Type: 
  Country: None (occurrence: None)
  Receive Date: 20120110
  Receipt Date: 20120103
  Transmission Date: 20120608
  Serious: Yes (Hospitalization)
  Sender: FDA-Public Use
  Company Number: US-GLAXOSMITHKLINE-A0814556A

PATIENT
  Age: 49 Year
  Sex: Male
  Weight: 95.9 kg

DRUGS (8)
  1. AVANDIA [Suspect]
     Indication: TYPE 2 DIABETES MELLITUS
     Dosage: 4MG TWICE PER DAY
     Route: 048
     Dates: start: 20000101
  2. CELEXA [Concomitant]
  3. GLIMEPIRIDE [Concomitant]
  4. INSULIN [Concomitant]
  5. VYTORIN [Concomitant]
  6. AVANDAMET [Suspect]
     Indication: DIABETES MELLITUS
     Dosage: 1TAB TWICE PER DAY
     Route: 048
     Dates: start: 20050101, end: 20090101
  7. TRICOR [Concomitant]
  8. EXFORGE [Concomitant]

REACTIONS (4)
  - HYPERTENSION [None]
  - CORONARY ARTERY DISEASE [None]
  - CARDIAC DISORDER [None]
  - ISCHAEMIC CARDIOMYOPATHY [None]
